FAERS Safety Report 10421496 (Version 4)
Quarter: 2015Q2

REPORT INFORMATION
  Report Type: Spontaneous
  Country: US (occurrence: US)
  Receive Date: 20140901
  Receipt Date: 20150413
  Transmission Date: 20150821
  Serious: Yes (Hospitalization, Other)
  Sender: FDA-Public Use
  Company Number: US-AMGEN-USASP2014065572

PATIENT
  Age: 55 Year
  Sex: Female

DRUGS (1)
  1. ENBREL [Suspect]
     Active Substance: ETANERCEPT
     Indication: RHEUMATOID ARTHRITIS
     Dosage: 50 MG, QWK
     Route: 065
     Dates: start: 1998, end: 201408

REACTIONS (11)
  - Infection [Recovered/Resolved]
  - Pain in extremity [Not Recovered/Not Resolved]
  - Chondrolysis [Recovered/Resolved]
  - Drug administered at inappropriate site [Unknown]
  - Fallopian tube operation [Recovered/Resolved]
  - Injury associated with device [Recovered/Resolved]
  - Injection site pain [Not Recovered/Not Resolved]
  - Large intestine perforation [Recovered/Resolved]
  - Expired product administered [Recovered/Resolved]
  - Peripheral swelling [Not Recovered/Not Resolved]
  - Injection site haemorrhage [Recovered/Resolved]

NARRATIVE: CASE EVENT DATE: 2009
